FAERS Safety Report 8333604-4 (Version None)
Quarter: 2012Q2

REPORT INFORMATION
  Report Type: 
  Country: None (occurrence: None)
  Receive Date: 20120503
  Receipt Date: 20120426
  Transmission Date: 20120825
  Serious: Yes (Hospitalization, Other)
  Sender: FDA-Public Use
  Company Number: PHHY2012BR036195

PATIENT
  Sex: Female

DRUGS (2)
  1. DIOVAN [Suspect]
     Indication: HYPERTENSION
     Dosage: 1 DF, DAILY
     Route: 048
  2. DIOVAN [Suspect]
     Dosage: 2 DF, A DAY

REACTIONS (4)
  - MALAISE [None]
  - BLOOD PRESSURE INCREASED [None]
  - CARDIAC ARREST [None]
  - DYSPNOEA [None]
